FAERS Safety Report 17531314 (Version 2)
Quarter: 2020Q1

REPORT INFORMATION
  Report Type: Spontaneous
  Country: DE (occurrence: DE)
  Receive Date: 20200311
  Receipt Date: 20200316
  Transmission Date: 20200409
  Serious: Yes (Other)
  Sender: FDA-Public Use
  Company Number: DE-BAUSCH-BL-2020-007082

PATIENT
  Sex: Female

DRUGS (1)
  1. TIM-OPHTAL 0.1% SINE [Suspect]
     Active Substance: TIMOLOL MALEATE
     Indication: PRODUCT USED FOR UNKNOWN INDICATION
     Dosage: USING SINCE MANY YEARS
     Route: 065

REACTIONS (2)
  - Upper limb fracture [Unknown]
  - Product container issue [Unknown]
